FAERS Safety Report 6637789-7 (Version None)
Quarter: 2010Q1

REPORT INFORMATION
  Report Type: 
  Country: None (occurrence: None)
  Receive Date: 20100315
  Receipt Date: 20100315
  Transmission Date: 20100710
  Serious: Yes (Other)
  Sender: FDA-Public Use
  Company Number: None

PATIENT
  Age: 55 Year
  Sex: Female
  Weight: 45.3597 kg

DRUGS (1)
  1. PHENYLEPHRINE OPHTHALMIC 2.5 NEOFRIN [Suspect]
     Indication: OPHTHALMOLOGICAL EXAMINATION
     Dosage: 2 DROPS 1 TIME INTRACORNEAL
     Route: 021
     Dates: start: 20050515, end: 20050515

REACTIONS (3)
  - DOCUMENTED HYPERSENSITIVITY TO ADMINISTERED DRUG [None]
  - EYE PAIN [None]
  - EYE SWELLING [None]
